FAERS Safety Report 5743463-1 (Version None)
Quarter: 2008Q2

REPORT INFORMATION
  Report Type: 
  Country: None (occurrence: None)
  Receive Date: 20080519
  Receipt Date: 20080519
  Transmission Date: 20081010
  Serious: Yes (Life-Threatening)
  Sender: FDA-Public Use
  Company Number: None

PATIENT
  Age: 65 Year
  Sex: Male
  Weight: 99.7913 kg

DRUGS (7)
  1. DIGITEK  0.25 MG,  ACTAVIS, DISTRIBUTED BY UNDER BERTEK AND UDL LABEL [Suspect]
     Indication: ANTIPHOSPHOLIPID ANTIBODIES
     Dosage: 0.25. MG. QD PO/MANY YEARS TO PRESENT
     Route: 048
  2. DIGITEK  0.25 MG,  ACTAVIS, DISTRIBUTED BY UNDER BERTEK AND UDL LABEL [Suspect]
     Indication: ARTERIOSCLEROSIS CORONARY ARTERY
     Dosage: 0.25. MG. QD PO/MANY YEARS TO PRESENT
     Route: 048
  3. DIGITEK  0.25 MG,  ACTAVIS, DISTRIBUTED BY UNDER BERTEK AND UDL LABEL [Suspect]
     Indication: ATRIAL FIBRILLATION
     Dosage: 0.25. MG. QD PO/MANY YEARS TO PRESENT
     Route: 048
  4. DIGITEK  0.25 MG,  ACTAVIS, DISTRIBUTED BY UNDER BERTEK AND UDL LABEL [Suspect]
     Indication: CARDIAC FAILURE CONGESTIVE
     Dosage: 0.25. MG. QD PO/MANY YEARS TO PRESENT
     Route: 048
  5. DIGITEK  0.25 MG,  ACTAVIS, DISTRIBUTED BY UNDER BERTEK AND UDL LABEL [Suspect]
     Indication: DEEP VEIN THROMBOSIS
     Dosage: 0.25. MG. QD PO/MANY YEARS TO PRESENT
     Route: 048
  6. DIGITEK  0.25 MG,  ACTAVIS, DISTRIBUTED BY UNDER BERTEK AND UDL LABEL [Suspect]
     Indication: MYOCARDIAL INFARCTION
     Dosage: 0.25. MG. QD PO/MANY YEARS TO PRESENT
     Route: 048
  7. DIGITEK [Concomitant]

REACTIONS (1)
  - PHARMACEUTICAL PRODUCT COMPLAINT [None]
